FAERS Safety Report 4960545-2 (Version None)
Quarter: 2006Q1

REPORT INFORMATION
  Report Type: 
  Country: None (occurrence: None)
  Receive Date: 20060331
  Receipt Date: 20060331
  Transmission Date: 20060701
  Serious: Yes (Disabling, Other)
  Sender: FDA-Public Use
  Company Number: None

PATIENT
  Age: 56 Year
  Sex: Male
  Weight: 176.9028 kg

DRUGS (4)
  1. LEVAQUIN [Suspect]
     Indication: INFLUENZA
     Dosage: IV BAG   THREE DAYS
     Route: 042
     Dates: start: 20060224, end: 20060302
  2. LEVAQUIN [Suspect]
     Indication: PNEUMONIA
     Dosage: IV BAG   THREE DAYS
     Route: 042
     Dates: start: 20060224, end: 20060302
  3. LEVAQUIN [Suspect]
     Indication: RESPIRATORY TRACT INFECTION
     Dosage: IV BAG   THREE DAYS
     Route: 042
     Dates: start: 20060224, end: 20060302
  4. LEVAQUIN [Suspect]
     Dosage: TWO 750 MG TABLETS    ONE TABLET A DAY

REACTIONS (20)
  - ADVERSE DRUG REACTION [None]
  - ANOREXIA [None]
  - ANXIETY [None]
  - BURNING SENSATION [None]
  - CHEST PAIN [None]
  - COLD SWEAT [None]
  - CONFUSIONAL STATE [None]
  - DYSGEUSIA [None]
  - DYSPNOEA [None]
  - FATIGUE [None]
  - FEELING HOT AND COLD [None]
  - INSOMNIA [None]
  - MALAISE [None]
  - MUSCLE DISORDER [None]
  - NERVOUSNESS [None]
  - PALLOR [None]
  - PANIC ATTACK [None]
  - SKIN BURNING SENSATION [None]
  - SPEECH DISORDER [None]
  - VISUAL DISTURBANCE [None]
